FAERS Safety Report 19431097 (Version 1)
Quarter: 2021Q2

REPORT INFORMATION
  Report Type: Spontaneous
  Country: US (occurrence: US)
  Receive Date: 20210618
  Receipt Date: 20210618
  Transmission Date: 20210717
  Serious: No
  Sender: FDA-Public Use
  Company Number: US-ROCHE-2748840

PATIENT
  Age: 60 Year
  Sex: Female
  Weight: 74.91 kg

DRUGS (7)
  1. ACTEMRA [Suspect]
     Active Substance: TOCILIZUMAB
  2. GABAPENIN [Concomitant]
     Active Substance: GABAPENTIN
     Indication: POLYMYALGIA RHEUMATICA
     Route: 048
     Dates: start: 2019
  3. PRAVASTATIN. [Concomitant]
     Active Substance: PRAVASTATIN
     Indication: HYPERCHOLESTEROLAEMIA
  4. ACTEMRA [Suspect]
     Active Substance: TOCILIZUMAB
     Indication: POLYMYALGIA RHEUMATICA
     Route: 058
     Dates: start: 202010
  5. PREMARIN [Concomitant]
     Active Substance: ESTROGENS, CONJUGATED
  6. PREDNISONE. [Concomitant]
     Active Substance: PREDNISONE
     Indication: POLYMYALGIA RHEUMATICA
     Route: 048
     Dates: start: 2018
  7. CYMBALTA [Concomitant]
     Active Substance: DULOXETINE HYDROCHLORIDE
     Indication: PAIN
     Route: 048
     Dates: start: 201910

REACTIONS (4)
  - Rash [Not Recovered/Not Resolved]
  - Intentional product use issue [Unknown]
  - Product contamination [Unknown]
  - Off label use [Unknown]

NARRATIVE: CASE EVENT DATE: 202010
